FAERS Safety Report 11741715 (Version 4)
Quarter: 2016Q1

REPORT INFORMATION
  Report Type: Report from Study
  Country: JP (occurrence: JP)
  Receive Date: 20151116
  Receipt Date: 20160206
  Transmission Date: 20160525
  Serious: Yes (Death, Hospitalization)
  Sender: FDA-Public Use
  Company Number: JP-AMGEN-JPNCT2015120817

PATIENT
  Age: 78 Year
  Sex: Male
  Weight: 73 kg

DRUGS (14)
  1. LOSARHYD [Concomitant]
     Dosage: 1 DF, QD
     Route: 048
  2. LOXOPROFEN SODIUM [Concomitant]
     Active Substance: LOXOPROFEN SODIUM
     Dosage: UNK, QD
     Route: 062
  3. GOREISAN                           /08015701/ [Concomitant]
     Dosage: 2 G, TID
     Route: 048
  4. FEBURIC [Concomitant]
     Active Substance: FEBUXOSTAT
     Dosage: 10 MG, QD
     Route: 048
  5. ZENASPIRIN [Concomitant]
     Dosage: 100 MG, QD
     Route: 048
  6. POSTERISAN                         /00593101/ [Concomitant]
     Dosage: 1 DF, QD
     Route: 061
  7. KAKKONTO                           /07985901/ [Concomitant]
     Dosage: 2.5 G, TID
     Route: 048
  8. NESP [Suspect]
     Active Substance: DARBEPOETIN ALFA
     Indication: CHRONIC KIDNEY DISEASE
     Dosage: 30 MUG, Q2WK
     Route: 065
     Dates: start: 20150813, end: 20151008
  9. NIFEDIPINE L [Concomitant]
     Dosage: 1 DF, QD
     Route: 048
  10. NESP [Suspect]
     Active Substance: DARBEPOETIN ALFA
     Indication: NEPHROGENIC ANAEMIA
  11. KREMEZIN [Concomitant]
     Active Substance: ACTIVATED CHARCOAL
     Dosage: 2 G, TID
     Route: 048
  12. ZENASPIRIN [Concomitant]
     Dosage: 100 MG, QD
     Route: 048
  13. URSODEOXYCHOLIC ACID [Concomitant]
     Active Substance: URSODIOL
     Dosage: 100 MG, TID
     Route: 048
  14. URIEF [Concomitant]
     Active Substance: SILODOSIN
     Dosage: 2 MG, BID
     Route: 048

REACTIONS (2)
  - Oedema peripheral [Fatal]
  - Oliguria [Fatal]

NARRATIVE: CASE EVENT DATE: 20151011
